FAERS Safety Report 6999599-0 (Version None)
Quarter: 2010Q3

REPORT INFORMATION
  Report Type: 
  Country: None (occurrence: None)
  Receive Date: 20100920
  Receipt Date: 20100526
  Transmission Date: 20110219
  Serious: No
  Sender: FDA-Public Use
  Company Number: US-ASTRAZENECA-2010SE23094

PATIENT
  Age: 656 Month
  Sex: Male
  Weight: 102.1 kg

DRUGS (10)
  1. SEROQUEL XR [Suspect]
     Indication: BIPOLAR DISORDER
     Route: 048
     Dates: start: 20090101
  2. SEROQUEL XR [Suspect]
     Route: 048
     Dates: end: 20100519
  3. SEROQUEL XR [Suspect]
     Route: 048
     Dates: start: 20100520
  4. SEROQUEL XR [Suspect]
     Dosage: 300 MG AM 600 MG PM
     Route: 048
     Dates: start: 20100523
  5. LEXAPRO [Concomitant]
     Indication: DEPRESSION
     Route: 048
  6. ACCUPRIL [Concomitant]
     Indication: HYPERTENSION
     Route: 048
  7. METFORMIN [Concomitant]
     Indication: DIABETES MELLITUS
     Route: 048
  8. LOBETA [Concomitant]
     Indication: HYPERTRIGLYCERIDAEMIA
     Route: 065
  9. LITHIUM CARBONATE [Concomitant]
     Route: 065
  10. XANAX [Concomitant]
     Route: 065

REACTIONS (12)
  - AGITATION [None]
  - ANXIETY [None]
  - CONFUSIONAL STATE [None]
  - DIABETES MELLITUS [None]
  - DRUG INEFFECTIVE [None]
  - DYSKINESIA [None]
  - HANGOVER [None]
  - HYPERCHOLESTEROLAEMIA [None]
  - HYPERGLYCAEMIA [None]
  - HYPERTRIGLYCERIDAEMIA [None]
  - MEMORY IMPAIRMENT [None]
  - SEDATION [None]
